FAERS Safety Report 7239716-0 (Version None)
Quarter: 2011Q1

REPORT INFORMATION
  Report Type: 
  Country: None (occurrence: None)
  Receive Date: 20110122
  Receipt Date: 20101025
  Transmission Date: 20110831
  Serious: No
  Sender: FDA-Public Use
  Company Number: US-ALLERGAN-1013702US

PATIENT
  Age: 24 Year
  Sex: Female

DRUGS (2)
  1. LIALDA [Concomitant]
     Indication: COLITIS ULCERATIVE
  2. LATISSE [Suspect]
     Indication: MADAROSIS
     Dosage: 1 GTT, QHS
     Route: 061

REACTIONS (3)
  - BLISTER [None]
  - OCULAR HYPERAEMIA [None]
  - BLEPHARITIS [None]
